FAERS Safety Report 7720431-1 (Version None)
Quarter: 2011Q3

REPORT INFORMATION
  Report Type: 
  Country: None (occurrence: None)
  Receive Date: 20110825
  Receipt Date: 20110809
  Transmission Date: 20111222
  Serious: Yes (Death)
  Sender: FDA-Public Use
  Company Number: THQ2011A03125

PATIENT
  Sex: Male

DRUGS (1)
  1. COMPETACT (PIOGLITAZONE HYDROCHLORIDE, METFORMIN HYDROCHLORIDE) [Suspect]
     Indication: TYPE 2 DIABETES MELLITUS
     Dosage: PIOGLITAZONE HYDROCHLORIDE/METFORMIN, PER ORAL
     Route: 048

REACTIONS (1)
  - ATRIOVENTRICULAR BLOCK [None]
